FAERS Safety Report 6902417-X (Version None)
Quarter: 2010Q3

REPORT INFORMATION
  Report Type: 
  Country: None (occurrence: None)
  Receive Date: 20100803
  Receipt Date: 20080521
  Transmission Date: 20110219
  Serious: No
  Sender: FDA-Public Use
  Company Number: US-PFIZER INC-2008027826

PATIENT
  Sex: Male
  Weight: 84.1 kg

DRUGS (4)
  1. LYRICA [Suspect]
     Indication: NEURALGIA
     Route: 048
     Dates: start: 20080325
  2. LOVASTATIN [Concomitant]
     Route: 048
     Dates: start: 19880101
  3. ZETIA [Concomitant]
     Route: 048
     Dates: start: 20050101
  4. ANDROGEL [Concomitant]
     Route: 048
     Dates: start: 20040101

REACTIONS (4)
  - ERECTILE DYSFUNCTION [None]
  - FEELING ABNORMAL [None]
  - LIBIDO DECREASED [None]
  - SOMNOLENCE [None]
